FAERS Safety Report 9226063 (Version 1)
Quarter: 2013Q2

REPORT INFORMATION
  Report Type: Other
  Country: GB (occurrence: GB)
  Receive Date: 20130411
  Receipt Date: 20130411
  Transmission Date: 20140414
  Serious: Yes (Life-Threatening)
  Sender: FDA-Public Use
  Company Number: GB-NICOBRDEVP-2013-06301

PATIENT
  Age: 48 Year
  Sex: Male

DRUGS (6)
  1. IBUPROFEN (UNKNOWN) [Suspect]
     Indication: PAIN
     Dosage: 400 MG, TID
     Route: 048
     Dates: start: 20080228, end: 20080317
  2. SOLIFENACIN [Concomitant]
     Indication: PRODUCT USED FOR UNKNOWN INDICATION
     Dosage: 10 MG, UNKNOWN
     Route: 065
  3. ATENOLOL [Concomitant]
     Indication: HYPERTENSION
     Dosage: 50 MG, DAILY
     Route: 065
  4. BACLOFEN [Concomitant]
     Indication: MULTIPLE SCLEROSIS
     Dosage: 30 MG, DAILY
     Route: 065
  5. LANSOPRAZOLE [Concomitant]
     Indication: PROPHYLAXIS AGAINST GASTROINTESTINAL ULCER
     Dosage: 30 MG, DAILY
     Route: 065
  6. SERTRALINE [Concomitant]
     Indication: DEPRESSION
     Dosage: 50 MG, DAILY
     Route: 065

REACTIONS (2)
  - Duodenitis haemorrhagic [Recovered/Resolved]
  - Systolic hypertension [Recovered/Resolved]
